FAERS Safety Report 8482850-8 (Version None)
Quarter: 2012Q3

REPORT INFORMATION
  Report Type: 
  Country: None (occurrence: None)
  Receive Date: 20120702
  Receipt Date: 20120627
  Transmission Date: 20120928
  Serious: Yes (Other)
  Sender: FDA-Public Use
  Company Number: IT-BAYER-2012-063689

PATIENT
  Age: 65 Year
  Sex: Male

DRUGS (2)
  1. LANSOPRAZOLE [Concomitant]
     Dosage: DAILY DOSE 15 MG
     Route: 048
  2. ASPIRIN [Suspect]
     Indication: PLATELET AGGREGATION INHIBITION
     Dosage: 100 MG, QD
     Route: 048
     Dates: start: 20120101

REACTIONS (4)
  - DYSPEPSIA [None]
  - OESOPHAGITIS [None]
  - GASTRITIS EROSIVE [None]
  - PORTAL HYPERTENSIVE GASTROPATHY [None]
